FAERS Safety Report 5803585-3 (Version None)
Quarter: 2008Q3

REPORT INFORMATION
  Report Type: 
  Country: None (occurrence: None)
  Receive Date: 20080703
  Receipt Date: 20080624
  Transmission Date: 20090109
  Serious: Yes (Death, Hospitalization)
  Sender: FDA-Public Use
  Company Number: FABR-11178

PATIENT
  Age: 78 Year
  Sex: Male
  Weight: 47 kg

DRUGS (12)
  1. FABRAZYME [Suspect]
     Indication: FABRY'S DISEASE
     Dosage: 45 MG, Q2W, INTRAVENOUS
     Route: 042
     Dates: start: 20010308, end: 20050708
  2. ENALAPRIL MALEATE [Concomitant]
  3. FUROSEMIDE [Concomitant]
  4. ASPIRIN [Concomitant]
  5. CARVEDILOL [Concomitant]
  6. CERNITIN POLLEN EXTRACT [Concomitant]
  7. FAMOTIDINE [Concomitant]
  8. WARFARIN POTASSIUM (WARFARIN POTASSIUM) [Concomitant]
  9. ALLOPURINOL [Concomitant]
  10. MAGNESIUM OXIDE (MAGNESIUM OXIDE) [Concomitant]
  11. ACETAMINOPHEN [Concomitant]
  12. HYDROXYZINE PAMOATE [Concomitant]

REACTIONS (5)
  - AORTIC VALVE INCOMPETENCE [None]
  - CARDIAC FAILURE CONGESTIVE [None]
  - MITRAL VALVE INCOMPETENCE [None]
  - RENAL FAILURE ACUTE [None]
  - TRICUSPID VALVE INCOMPETENCE [None]
